FAERS Safety Report 7325200-2 (Version None)
Quarter: 2011Q1

REPORT INFORMATION
  Report Type: 
  Country: None (occurrence: None)
  Receive Date: 20110302
  Receipt Date: 20110222
  Transmission Date: 20110831
  Serious: Yes (Hospitalization)
  Sender: FDA-Public Use
  Company Number: US-US-EMD SERONO, INC.-7043393

PATIENT
  Sex: Female
  Weight: 89 kg

DRUGS (3)
  1. REBIF [Suspect]
     Route: 058
     Dates: start: 20100301
  2. EFFEXOR [Concomitant]
     Indication: DEPRESSION
  3. REBIF [Suspect]
     Indication: MULTIPLE SCLEROSIS
     Route: 058
     Dates: start: 20060401, end: 20090601

REACTIONS (4)
  - GESTATIONAL HYPERTENSION [None]
  - NORMAL NEWBORN [None]
  - INDUCED LABOUR [None]
  - DRUG EXPOSURE DURING PREGNANCY [None]
